FAERS Safety Report 20643157 (Version 1)
Quarter: 2022Q1

REPORT INFORMATION
  Report Type: Report from Study
  Country: DE (occurrence: DE)
  Receive Date: 20220328
  Receipt Date: 20220328
  Transmission Date: 20220423
  Serious: Yes (Hospitalization)
  Sender: FDA-Public Use
  Company Number: DE-BAXTER-2014BAX057652

PATIENT
  Age: 58 Year
  Weight: 80 kg

DRUGS (20)
  1. ADVATE [Suspect]
     Active Substance: ANTIHEMOPHILIC FACTOR, HUMAN RECOMBINANT
     Indication: Factor VIII deficiency
     Dosage: 1000 INTERNATIONAL UNIT, 1/WEEK
     Route: 065
     Dates: start: 20090610
  2. ADVATE [Suspect]
     Active Substance: ANTIHEMOPHILIC FACTOR, HUMAN RECOMBINANT
     Indication: Factor VIII deficiency
     Dosage: 1000 INTERNATIONAL UNIT, 1/WEEK
     Route: 065
     Dates: start: 20090610
  3. ADVATE [Suspect]
     Active Substance: ANTIHEMOPHILIC FACTOR, HUMAN RECOMBINANT
     Indication: Factor VIII deficiency
     Dosage: 1000 INTERNATIONAL UNIT, 1/WEEK
     Route: 065
     Dates: start: 20090610
  4. ADVATE [Suspect]
     Active Substance: ANTIHEMOPHILIC FACTOR, HUMAN RECOMBINANT
     Indication: Prophylaxis
     Dosage: 2000 INTERNATIONAL UNIT
     Route: 065
     Dates: start: 20131202
  5. ADVATE [Suspect]
     Active Substance: ANTIHEMOPHILIC FACTOR, HUMAN RECOMBINANT
     Indication: Prophylaxis
     Dosage: 2000 INTERNATIONAL UNIT
     Route: 065
     Dates: start: 20131202
  6. ADVATE [Suspect]
     Active Substance: ANTIHEMOPHILIC FACTOR, HUMAN RECOMBINANT
     Indication: Prophylaxis
     Dosage: 2000 INTERNATIONAL UNIT
     Route: 065
     Dates: start: 20131202
  7. ADVATE [Suspect]
     Active Substance: ANTIHEMOPHILIC FACTOR, HUMAN RECOMBINANT
     Indication: Surgery
     Dosage: 2000 INTERNATIONAL UNIT
     Route: 065
     Dates: start: 20131202
  8. ADVATE [Suspect]
     Active Substance: ANTIHEMOPHILIC FACTOR, HUMAN RECOMBINANT
     Indication: Surgery
     Dosage: 2000 INTERNATIONAL UNIT
     Route: 065
     Dates: start: 20131202
  9. ADVATE [Suspect]
     Active Substance: ANTIHEMOPHILIC FACTOR, HUMAN RECOMBINANT
     Indication: Surgery
     Dosage: 2000 INTERNATIONAL UNIT
     Route: 065
     Dates: start: 20131202
  10. METOPROLOL [Concomitant]
     Active Substance: METOPROLOL
     Indication: Hypertension
     Dosage: 47.5MILLIGRAM1X A DAY
     Route: 048
     Dates: start: 20040501
  11. RAMIPRIL [Concomitant]
     Active Substance: RAMIPRIL
     Indication: Hypertension
     Dosage: 5MILLIGRAM2X A DAY
     Route: 048
     Dates: start: 20080101
  12. HYDROCHLOROTHIAZIDE [Concomitant]
     Active Substance: HYDROCHLOROTHIAZIDE
     Indication: Hypertension
     Dosage: 25MILLIGRAM1X A DAY
     Route: 048
     Dates: start: 20040501
  13. CIPROFLOXACIN [Concomitant]
     Active Substance: CIPROFLOXACIN
     Indication: Antibiotic therapy
     Dosage: 500MILLIGRAM2X A DAY
     Route: 048
     Dates: start: 20130516, end: 20130704
  14. FLUCLOXACILLIN [Concomitant]
     Active Substance: FLUCLOXACILLIN
     Indication: Antibiotic therapy
     Dosage: 500MILLIGRAM6X A DAY
     Route: 048
     Dates: start: 20130516, end: 20130704
  15. RIFAMPIN [Concomitant]
     Active Substance: RIFAMPIN
     Indication: Antibiotic therapy
     Dosage: 450MILLIGRAM2X A DAY
     Route: 048
     Dates: start: 20130705, end: 20130830
  16. LEVOFLOXACIN [Concomitant]
     Active Substance: LEVOFLOXACIN
     Indication: Antibiotic therapy
     Dosage: 750MILLIGRAM1X A DAY
     Route: 048
     Dates: start: 20130705, end: 20130830
  17. PANTOPRAZOLE [Concomitant]
     Active Substance: PANTOPRAZOLE
     Indication: Prophylaxis against gastrointestinal ulcer
     Dosage: 40MILLIGRAM1X A DAY
     Route: 048
     Dates: start: 20130620
  18. ISOSORBIDE MONONITRATE [Concomitant]
     Active Substance: ISOSORBIDE MONONITRATE
     Indication: Coronary artery disease
     Dosage: 20MILLIGRAM2X A DAY
     Route: 048
     Dates: start: 20130620, end: 20130707
  19. ISOSORBIDE MONONITRATE [Concomitant]
     Active Substance: ISOSORBIDE MONONITRATE
     Indication: Hypertension
  20. ASPIRIN [Concomitant]
     Active Substance: ASPIRIN
     Indication: Coronary artery disease
     Dosage: 100MILLIGRAM1X A DAY
     Route: 048
     Dates: start: 20130620

REACTIONS (1)
  - Coronary artery disease [Recovered/Resolved]

NARRATIVE: CASE EVENT DATE: 20130528
